FAERS Safety Report 20794627 (Version 2)
Quarter: 2023Q2

REPORT INFORMATION
  Report Type: Spontaneous
  Country: US (occurrence: US)
  Receive Date: 20220506
  Receipt Date: 20230531
  Transmission Date: 20230722
  Serious: No
  Sender: FDA-Public Use
  Company Number: US-UCBSA-2021047055

PATIENT
  Age: 53 Year
  Sex: Male
  Weight: 100 kg

DRUGS (1)
  1. CIMZIA [Suspect]
     Active Substance: CERTOLIZUMAB PEGOL
     Indication: Spondyloarthropathy
     Dosage: 200 MILLIGRAM, EV 2 WEEKS(QOW)
     Dates: start: 202107

REACTIONS (1)
  - Product dose omission issue [Unknown]

NARRATIVE: CASE EVENT DATE: 20210930
